FAERS Safety Report 5679475-6 (Version None)
Quarter: 2008Q1

REPORT INFORMATION
  Report Type: 
  Country: None (occurrence: None)
  Receive Date: 20080321
  Receipt Date: 20080311
  Transmission Date: 20080703
  Serious: Yes (Other)
  Sender: FDA-Public Use
  Company Number: 2008AL001609

PATIENT
  Age: 70 Year
  Sex: Female

DRUGS (5)
  1. DICLOFENAC SODIUM [Suspect]
     Indication: ANALGESIA
     Dosage: 50 MG; PO
     Route: 048
     Dates: start: 20080115, end: 20080120
  2. GLICLAZIDE [Concomitant]
  3. METFORMIN HCL [Concomitant]
  4. ACETAMINOPHEN [Concomitant]
  5. RANITIDINE [Concomitant]

REACTIONS (2)
  - URINARY RETENTION [None]
  - URINE OUTPUT DECREASED [None]
